FAERS Safety Report 7780804-8 (Version None)
Quarter: 2011Q3

REPORT INFORMATION
  Report Type: 
  Country: None (occurrence: None)
  Receive Date: 20110927
  Receipt Date: 20110920
  Transmission Date: 20111222
  Serious: No
  Sender: FDA-Public Use
  Company Number: US-PFIZER INC-2011185200

PATIENT
  Sex: Female
  Weight: 100 kg

DRUGS (2)
  1. CELEBREX [Suspect]
     Indication: ARTHRITIS
     Dosage: 200 MG, 1X/DAY
     Route: 048
     Dates: start: 20110810, end: 20110811
  2. CELEBREX [Suspect]
     Indication: INFLAMMATION

REACTIONS (3)
  - IRRITABILITY [None]
  - PARAESTHESIA [None]
  - FEELING ABNORMAL [None]
